FAERS Safety Report 18439128 (Version 6)
Quarter: 2020Q4

REPORT INFORMATION
  Report Type: Report from Study
  Country: BR (occurrence: BR)
  Receive Date: 20201028
  Receipt Date: 20201209
  Transmission Date: 20210114
  Serious: Yes (Death, Other)
  Sender: FDA-Public Use
  Company Number: BR-GILEAD-2020-0500094

PATIENT
  Age: 42 Year
  Sex: Female
  Weight: 108 kg

DRUGS (35)
  1. SALBUTAMOL [Concomitant]
     Active Substance: ALBUTEROL
     Indication: COVID-19 PNEUMONIA
     Dosage: 200 UG
     Dates: start: 20201006, end: 20201014
  2. SODIUM NITROPRUSSIDE. [Concomitant]
     Active Substance: SODIUM NITROPRUSSIDE
     Indication: HYPERTENSION
     Dosage: 50 MG
     Dates: start: 20201008, end: 20201013
  3. METHYLPREDNISOLONE. [Concomitant]
     Active Substance: METHYLPREDNISOLONE
     Indication: COVID-19 PNEUMONIA
     Dosage: 80 MG
     Dates: start: 20201009, end: 20201013
  4. SERTRALINE [Concomitant]
     Active Substance: SERTRALINE HYDROCHLORIDE
     Indication: ANXIETY DISORDER
     Dosage: 50 MG
     Dates: start: 20201010, end: 20201013
  5. IVERMECTIN. [Concomitant]
     Active Substance: IVERMECTIN
     Indication: COVID-19 PNEUMONIA
     Dosage: 2 DOSAGE FORM
     Dates: start: 20201006, end: 20201008
  6. CAPTOPRIL. [Concomitant]
     Active Substance: CAPTOPRIL
     Indication: HYPERTENSION
     Dosage: 50 MG
     Dates: start: 1996, end: 20201013
  7. CAPTOPRIL. [Concomitant]
     Active Substance: CAPTOPRIL
     Indication: HYPERTENSION
  8. POTASSIUM CHLORIDE. [Concomitant]
     Active Substance: POTASSIUM CHLORIDE
     Indication: HYPOKALAEMIA
     Dosage: 15 ML
     Dates: start: 20201006, end: 20201008
  9. SODIUM NITROPRUSSIDE. [Concomitant]
     Active Substance: SODIUM NITROPRUSSIDE
     Indication: HYPERTENSION
  10. QUETIAPINE. [Concomitant]
     Active Substance: QUETIAPINE
     Indication: ANXIETY
     Dosage: 25 MG
     Dates: start: 20201010, end: 20201013
  11. KETAMINE [Concomitant]
     Active Substance: KETAMINE
     Indication: SEDATION
     Dosage: 50 MG
     Dates: start: 20201013, end: 20201014
  12. PLACEBO [Suspect]
     Active Substance: UNSPECIFIED INGREDIENT
     Indication: COVID-19 PNEUMONIA
     Dosage: UNK
     Route: 042
  13. PLACEBO [Suspect]
     Active Substance: UNSPECIFIED INGREDIENT
     Dosage: MOST RECENT DOSE OF BLINDED TOCILIZUMAB PRIOR TO ADVERSE EVENT ONSET 08 OCT 2020 AT 16:25
     Route: 042
  14. HIDRALAZINA [HYDRALAZINE] [Concomitant]
     Indication: HYPERTENSION
  15. TERBUTALINE [Concomitant]
     Active Substance: TERBUTALINE
     Indication: COVID-19 PNEUMONIA
     Dosage: 95 MG
     Dates: start: 20201006, end: 20201012
  16. FUROSEMIDA [FUROSEMIDE] [Concomitant]
     Active Substance: FUROSEMIDE
     Indication: HYPERTENSIVE CRISIS
     Dosage: 20 MG
     Dates: start: 20201010, end: 20201010
  17. MORPHINE [Concomitant]
     Active Substance: MORPHINE
     Indication: HYPERTENSIVE CRISIS
     Dosage: 10 MG
     Dates: start: 20201010, end: 20201013
  18. FENTANIL [Concomitant]
     Active Substance: FENTANYL
     Dosage: 50 ML
     Dates: start: 20201013, end: 20201014
  19. VASOPRESSIN. [Concomitant]
     Active Substance: VASOPRESSIN
  20. MIDAZOLAM. [Concomitant]
     Active Substance: MIDAZOLAM
     Indication: SEDATION
     Dates: start: 20201013, end: 20201014
  21. DEXAMETHASONE. [Concomitant]
     Active Substance: DEXAMETHASONE
     Indication: COVID-19 PNEUMONIA
     Dosage: 6 MG
     Dates: start: 20201006, end: 20201008
  22. HIDRALAZINA [HYDRALAZINE] [Concomitant]
     Indication: HYPERTENSION
     Dosage: 50 MG
     Dates: start: 20201006, end: 20201013
  23. HYDROCORTISONE. [Concomitant]
     Active Substance: HYDROCORTISONE
     Indication: COVID-19 PNEUMONIA
     Dosage: 500 MG
     Dates: end: 20201008
  24. PLACEBO [Suspect]
     Active Substance: UNSPECIFIED INGREDIENT
     Dosage: MOST RECENT DOSE OF PRIOR TO ADVERSE EVENT ONSET 08 OCT 2020 AT 16:25
     Route: 042
  25. CEFTRIAXONE. [Concomitant]
     Active Substance: CEFTRIAXONE
     Indication: COVID-19 PNEUMONIA
     Dosage: 1 G
     Dates: start: 20201006, end: 20201013
  26. LEVOTHYROXINE. [Concomitant]
     Active Substance: LEVOTHYROXINE
     Indication: HYPOTHYROIDISM
     Dates: start: 1996, end: 20201014
  27. AMLODIPINO [AMLODIPINE] [Concomitant]
     Indication: HYPERTENSION
     Dosage: 1 DOSAGE FORM
     Dates: start: 20201006, end: 20201013
  28. AMLODIPINO [AMLODIPINE] [Concomitant]
     Indication: HYPERTENSION
  29. ENOXAPARIN [Concomitant]
     Active Substance: ENOXAPARIN
     Indication: DEEP VEIN THROMBOSIS
     Dosage: 40 MG
     Dates: start: 20201006, end: 20201007
  30. MINERAL OIL. [Concomitant]
     Active Substance: MINERAL OIL
     Dosage: 10 ML
     Dates: start: 20201012, end: 20201014
  31. REMDESIVIR. [Suspect]
     Active Substance: REMDESIVIR
     Indication: COVID-19 PNEUMONIA
     Dosage: 100 MG, QD
     Route: 042
     Dates: start: 20201008
  32. OSELTAMIVIR [Concomitant]
     Active Substance: OSELTAMIVIR
     Indication: COVID-19 PNEUMONIA
     Dosage: 75 MG
     Dates: start: 20201006, end: 20201010
  33. INSULIN [Concomitant]
     Active Substance: INSULIN NOS
     Indication: DIABETES MELLITUS
     Dosage: 45 IU
     Dates: start: 1996, end: 20201014
  34. LACTULOSE. [Concomitant]
     Active Substance: LACTULOSE
     Dosage: 2 ML
     Dates: start: 20201006, end: 20201012
  35. NOREPINEFRINA [NOREPINEPHRINE] [Concomitant]

REACTIONS (2)
  - Septic shock [Fatal]
  - Hepatitis acute [Fatal]

NARRATIVE: CASE EVENT DATE: 20201014
